FAERS Safety Report 12262828 (Version 1)
Quarter: 2016Q2

REPORT INFORMATION
  Report Type: Spontaneous
  Country: US (occurrence: US)
  Receive Date: 20160413
  Receipt Date: 20160413
  Transmission Date: 20160815
  Serious: Yes (Other)
  Sender: FDA-Public Use
  Company Number: US-BEH-2016061024

PATIENT
  Sex: Female
  Weight: 45 kg

DRUGS (14)
  1. TYLENOL [Concomitant]
     Active Substance: ACETAMINOPHEN
  2. PRIVIGEN [Suspect]
     Active Substance: HUMAN IMMUNOGLOBULIN G
     Indication: IMMUNODEFICIENCY COMMON VARIABLE
     Dosage: 5 GRAM VIALS
     Route: 042
  3. EPIPEN [Concomitant]
     Active Substance: EPINEPHRINE
  4. NITROSTAT [Concomitant]
     Active Substance: NITROGLYCERIN
  5. DUONEB [Concomitant]
     Active Substance: ALBUTEROL SULFATE\IPRATROPIUM BROMIDE
  6. ACETAMINOPHEN. [Concomitant]
     Active Substance: ACETAMINOPHEN
  7. SODIUM CHLORIDE. [Concomitant]
     Active Substance: SODIUM CHLORIDE
  8. XANAX [Concomitant]
     Active Substance: ALPRAZOLAM
  9. PREDNISONE. [Concomitant]
     Active Substance: PREDNISONE
  10. DEXILANT [Concomitant]
     Active Substance: DEXLANSOPRAZOLE
  11. OXYGEN. [Concomitant]
     Active Substance: OXYGEN
  12. DIPHENHYDRAMINE. [Concomitant]
     Active Substance: DIPHENHYDRAMINE
  13. VITAMIN D [Concomitant]
     Active Substance: CHOLECALCIFEROL
  14. NORMAL SALINE [Concomitant]
     Active Substance: SODIUM CHLORIDE

REACTIONS (1)
  - Thrombosis [Unknown]
